FAERS Safety Report 7850843-7 (Version None)
Quarter: 2011Q4

REPORT INFORMATION
  Report Type: 
  Country: None (occurrence: None)
  Receive Date: 20111021
  Receipt Date: 20111010
  Transmission Date: 20120403
  Serious: Yes (Other)
  Sender: FDA-Public Use
  Company Number: 1077154

PATIENT
  Age: 50 Year
  Sex: Male

DRUGS (3)
  1. CARBOPLATIN [Suspect]
     Indication: LUNG ADENOCARCINOMA
     Dosage: 450 MG, INTRAVENOUS DRIP
     Route: 041
  2. PACLITAXEL [Concomitant]
  3. DEXTROSE [Concomitant]

REACTIONS (2)
  - ATRIAL FIBRILLATION [None]
  - KOUNIS SYNDROME [None]
